FAERS Safety Report 5118443-X (Version None)
Quarter: 2006Q4

REPORT INFORMATION
  Report Type: 
  Country: None (occurrence: None)
  Receive Date: 20061002
  Receipt Date: 20060926
  Transmission Date: 20070319
  Serious: Yes (Death, Hospitalization)
  Sender: FDA-Public Use
  Company Number: US-BRISTOL-MYERS SQUIBB COMPANY-13521638

PATIENT
  Age: 32 Year
  Sex: Female
  Weight: 54 kg

DRUGS (3)
  1. ATAZANAVIR [Suspect]
     Indication: HIV INFECTION
     Dates: start: 20060426, end: 20060821
  2. DIDANOSINE [Suspect]
     Indication: HIV INFECTION
     Dates: start: 20060426, end: 20060821
  3. EMTRICITABINE [Suspect]
     Indication: HIV INFECTION
     Dates: start: 20060426, end: 20060821

REACTIONS (5)
  - HEPATITIS [None]
  - LACTIC ACIDOSIS [None]
  - PANCREATITIS [None]
  - PNEUMONIA [None]
  - SEPSIS [None]
